FAERS Safety Report 8914153 (Version 4)
Quarter: 2013Q4

REPORT INFORMATION
  Report Type: Report from Study
  Country: US (occurrence: US)
  Receive Date: 20121116
  Receipt Date: 20131113
  Transmission Date: 20140711
  Serious: Yes (Congenital Anomaly)
  Sender: FDA-Public Use
  Company Number: US-MYLANLABS-2012S1023522

PATIENT
  Age: 0 Day
  Sex: Male
  Weight: 3.68 kg

DRUGS (2)
  1. CLARAVIS [Suspect]
  2. AMNESTEEM CAPSULES [Suspect]
     Route: 064

REACTIONS (3)
  - Congenital anomaly [Not Recovered/Not Resolved]
  - Foetal exposure during pregnancy [Recovered/Resolved]
  - Torticollis [Recovered/Resolved]
